FAERS Safety Report 19274269 (Version 1)
Quarter: 2021Q2

REPORT INFORMATION
  Report Type: Spontaneous
  Country: US (occurrence: US)
  Receive Date: 20210519
  Receipt Date: 20210519
  Transmission Date: 20210717
  Serious: Yes (Other)
  Sender: FDA-Public Use
  Company Number: None

PATIENT
  Sex: Female
  Weight: 67 kg

DRUGS (4)
  1. IBUPROFEN 200MG [Concomitant]
     Active Substance: IBUPROFEN
     Dates: start: 20210518
  2. LORATADINE 10MG [Concomitant]
     Active Substance: LORATADINE
     Dates: start: 20210518
  3. BENADRYL [Concomitant]
     Active Substance: DIPHENHYDRAMINE HYDROCHLORIDE
     Dates: start: 20210518
  4. GAMUNEX?C [Suspect]
     Active Substance: HUMAN IMMUNOGLOBULIN G
     Indication: PRODUCT USED FOR UNKNOWN INDICATION
     Dosage: ?          OTHER FREQUENCY:EVERY 2 WEEKS;?
     Route: 041
     Dates: start: 20210518

REACTIONS (3)
  - Infusion site discomfort [None]
  - Pruritus [None]
  - Infusion related reaction [None]
